FAERS Safety Report 9633952 (Version 3)
Quarter: 2013Q4

REPORT INFORMATION
  Report Type: Report from Study
  Country: US (occurrence: US)
  Receive Date: 20131021
  Receipt Date: 20131211
  Transmission Date: 20140711
  Serious: Yes (Life-Threatening, Hospitalization)
  Sender: FDA-Public Use
  Company Number: US-PFIZER INC-2013296399

PATIENT
  Age: 57 Year
  Sex: Female
  Weight: 98.6 kg

DRUGS (5)
  1. NO SUBJECT DRUG [Suspect]
     Indication: ADENOCARCINOMA OF COLON
     Dosage: NO DOSE GIVEN
     Route: 048
  2. FLUOROURACIL [Suspect]
     Indication: ADENOCARCINOMA OF COLON
     Dosage: 400MG/M2 IVP ON DAY 1
     Route: 042
     Dates: start: 20130916
  3. FLUOROURACIL [Suspect]
     Dosage: 2400 MG/M2 OVER 46-48 HOURS ON DAY 1
     Route: 042
     Dates: start: 20130916
  4. ELOXATIN [Suspect]
     Indication: ADENOCARCINOMA OF COLON
     Dosage: 85MG/M2 OVER 2 HOURS ON DAY 1
     Route: 042
     Dates: start: 20130916
  5. LEUCOVORIN CALCIUM [Concomitant]
     Indication: ADENOCARCINOMA OF COLON
     Dosage: 400MG/M2 OVER 2 HOURS ON DAY 1
     Route: 042
     Dates: start: 20130916

REACTIONS (4)
  - Sepsis [Not Recovered/Not Resolved]
  - Renal failure acute [Recovered/Resolved]
  - Blood creatinine increased [Unknown]
  - Platelet count decreased [Recovered/Resolved]
